FAERS Safety Report 9931436 (Version 2)
Quarter: 2015Q4

REPORT INFORMATION
  Report Type: Report from Study
  Country: US (occurrence: US)
  Receive Date: 20140228
  Receipt Date: 20151209
  Transmission Date: 20160305
  Serious: Yes (Other)
  Sender: FDA-Public Use
  Company Number: US-ROCHE-1351391

PATIENT
  Sex: Female

DRUGS (13)
  1. TPA [Concomitant]
     Active Substance: ALTEPLASE
     Route: 050
  2. OFLOXACIN. [Concomitant]
     Active Substance: OFLOXACIN
     Dosage: 0.3% OD  FOR 3 DAYS
     Route: 047
  3. AVASTIN [Suspect]
     Active Substance: BEVACIZUMAB
     Indication: VITREOUS ADHESIONS
  4. AVASTIN [Suspect]
     Active Substance: BEVACIZUMAB
     Indication: CHOROIDAL NEOVASCULARISATION
  5. AVASTIN [Suspect]
     Active Substance: BEVACIZUMAB
     Indication: CYSTOID MACULAR OEDEMA
  6. DEXAMETHASONE. [Concomitant]
     Active Substance: DEXAMETHASONE
     Route: 050
  7. TROPICAMIDE. [Concomitant]
     Active Substance: TROPICAMIDE
     Route: 047
  8. AVASTIN [Suspect]
     Active Substance: BEVACIZUMAB
     Indication: PRESUMED OCULAR HISTOPLASMOSIS SYNDROME
     Route: 050
  9. AVASTIN [Suspect]
     Active Substance: BEVACIZUMAB
     Indication: MACULAR FIBROSIS
  10. AVASTIN [Suspect]
     Active Substance: BEVACIZUMAB
     Indication: BLINDNESS
  11. LUCENTIS [Suspect]
     Active Substance: RANIBIZUMAB
     Indication: RETINITIS HISTOPLASMA
     Route: 050
  12. PHENYLEPHRINE [Concomitant]
     Active Substance: PHENYLEPHRINE\PHENYLEPHRINE HYDROCHLORIDE
     Route: 047
  13. PROPARACAINE [Concomitant]
     Active Substance: PROPARACAINE
     Route: 047

REACTIONS (9)
  - Cataract cortical [Unknown]
  - Subretinal fibrosis [Unknown]
  - Vitreous floaters [Unknown]
  - Photopsia [Unknown]
  - Blepharitis [Unknown]
  - Headache [Unknown]
  - Retinal haemorrhage [Unknown]
  - Dizziness [Unknown]
  - Product use issue [Unknown]
